FAERS Safety Report 6565240-4 (Version None)
Quarter: 2010Q1

REPORT INFORMATION
  Report Type: 
  Country: None (occurrence: None)
  Receive Date: 20100201
  Receipt Date: 20100127
  Transmission Date: 20100710
  Serious: Yes (Other)
  Sender: FDA-Public Use
  Company Number: JP-ROCHE-671490

PATIENT
  Sex: Male

DRUGS (9)
  1. AVASTIN [Suspect]
     Indication: RECTAL CANCER METASTATIC
     Route: 041
     Dates: start: 20090107
  2. ELPLAT [Suspect]
     Indication: RECTAL CANCER METASTATIC
     Route: 041
  3. AMLODIPINE [Suspect]
     Indication: HYPERTENSION
     Route: 048
  4. DIOVAN [Suspect]
     Indication: HYPERTENSION
     Route: 048
  5. DEXART [Suspect]
     Indication: DRUG USE FOR UNKNOWN INDICATION
     Route: 042
  6. 5-FU [Concomitant]
     Route: 042
  7. LEVOFOLINATE [Concomitant]
     Route: 041
  8. TAKEPRON [Concomitant]
     Route: 048
  9. NASEA [Concomitant]
     Route: 042

REACTIONS (2)
  - DISSEMINATED INTRAVASCULAR COAGULATION [None]
  - PYREXIA [None]
